FAERS Safety Report 14937883 (Version 2)
Quarter: 2018Q4

REPORT INFORMATION
  Report Type: Spontaneous
  Country: JP (occurrence: JP)
  Receive Date: 20180525
  Receipt Date: 20181019
  Transmission Date: 20190204
  Serious: Yes (Death, Hospitalization, Other)
  Sender: FDA-Public Use
  Company Number: JP-ELI_LILLY_AND_COMPANY-JP201805010599

PATIENT
  Age: 63 Year
  Sex: Male
  Weight: 61 kg

DRUGS (7)
  1. ERBITUX [Suspect]
     Active Substance: CETUXIMAB
     Indication: ORAL NEOPLASM
     Dosage: 650 MG, SINGLE
     Route: 041
     Dates: start: 20170605, end: 20170605
  2. ERBITUX [Suspect]
     Active Substance: CETUXIMAB
     Dosage: 300 MG, WEEKLY (1/W)
     Route: 041
     Dates: start: 20180109, end: 20180409
  3. PACLITAXEL. [Concomitant]
     Active Substance: PACLITAXEL
     Indication: ORAL NEOPLASM
     Dosage: 130 MG, WEEKLY (1/W)
     Route: 065
     Dates: start: 20170731, end: 20180409
  4. ERBITUX [Suspect]
     Active Substance: CETUXIMAB
     Dosage: 400 MG, WEEKLY (1/W)
     Route: 041
     Dates: start: 20170612, end: 20171127
  5. ERBITUX [Suspect]
     Active Substance: CETUXIMAB
     Dosage: 300 MG, UNKNOWN
     Route: 041
     Dates: start: 20180501, end: 20180501
  6. ERBITUX [Suspect]
     Active Substance: CETUXIMAB
     Dosage: 300 MG, UNKNOWN
     Route: 041
     Dates: start: 20180507, end: 20180507
  7. PACLITAXEL. [Concomitant]
     Active Substance: PACLITAXEL
     Indication: ORAL NEOPLASM
     Dosage: 130 MG, WEEKLY (1/W)
     Route: 065
     Dates: start: 20170703, end: 20170710

REACTIONS (6)
  - Malignant neoplasm progression [Fatal]
  - Off label use [Unknown]
  - Pneumothorax [Not Recovered/Not Resolved]
  - Feeding disorder [Unknown]
  - Fungal infection [Unknown]
  - Pneumonia aspiration [Unknown]

NARRATIVE: CASE EVENT DATE: 201805
